APPROVED DRUG PRODUCT: TOLBUTAMIDE
Active Ingredient: TOLBUTAMIDE
Strength: 250MG
Dosage Form/Route: TABLET;ORAL
Application: A089110 | Product #001
Applicant: WATSON LABORATORIES INC
Approved: May 29, 1987 | RLD: No | RS: No | Type: DISCN